FAERS Safety Report 17958332 (Version 2)
Quarter: 2020Q3

REPORT INFORMATION
  Report Type: Spontaneous
  Country: GR (occurrence: GR)
  Receive Date: 20200629
  Receipt Date: 20200731
  Transmission Date: 20201103
  Serious: Yes (Hospitalization, Other)
  Sender: FDA-Public Use
  Company Number: GR-ASTRAZENECA-2020SE80227

PATIENT
  Age: 78 Year
  Sex: Female
  Weight: 70 kg

DRUGS (8)
  1. XIGDUO XR [Suspect]
     Active Substance: DAPAGLIFLOZIN PROPANEDIOL\METFORMIN HYDROCHLORIDE
     Indication: TYPE 2 DIABETES MELLITUS
     Dosage: (5/1000) MG DAILY
     Route: 048
     Dates: start: 201910, end: 20200526
  2. T4 [Concomitant]
     Active Substance: LEVOTHYROXINE
     Indication: HYPERLIPIDAEMIA
     Route: 048
  3. CITALOPRAM [Concomitant]
     Active Substance: CITALOPRAM HYDROBROMIDE
     Indication: DEPRESSION
     Route: 048
  4. OLMETEC [Concomitant]
     Active Substance: OLMESARTAN MEDOXOMIL
     Indication: HYPERLIPIDAEMIA
     Route: 048
  5. LOGIMAX [Concomitant]
     Active Substance: FELODIPINE\METOPROLOL SUCCINATE
     Indication: HYPERLIPIDAEMIA
     Route: 048
  6. CALCIORAL [Concomitant]
     Dosage: (5/4254) 1, DAILY
     Route: 048
  7. ROSUVASTATIN. [Concomitant]
     Active Substance: ROSUVASTATIN
     Indication: HYPERLIPIDAEMIA
     Route: 048
  8. CALCIUM CARBONATE PLUS VITAMIN D [Concomitant]
     Indication: OSTEOPOROSIS
     Dosage: (500 MG PLUS 400 IU) ONE TABLET TWO TIMES A DAY
     Route: 048

REACTIONS (4)
  - Renal impairment [Unknown]
  - Acute kidney injury [Recovered/Resolved]
  - Off label use [Recovered/Resolved]
  - Pseudomembranous colitis [Not Recovered/Not Resolved]

NARRATIVE: CASE EVENT DATE: 202005
